FAERS Safety Report 4476723-5 (Version None)
Quarter: 2004Q4

REPORT INFORMATION
  Report Type: 
  Country: None (occurrence: None)
  Receive Date: 20041013
  Receipt Date: 20040928
  Transmission Date: 20050328
  Serious: Yes (Hospitalization, Disabling)
  Sender: FDA-Public Use
  Company Number: BDI-006523

PATIENT
  Age: 64 Year
  Sex: Male

DRUGS (6)
  1. IOPAMIDOL [Suspect]
     Indication: BACK PAIN
     Dosage: 1 ML ONCE ED
  2. IOPAMIDOL [Suspect]
     Indication: EPIDURAL ANAESTHESIA
     Dosage: 1 ML ONCE ED
  3. BUPIVACAINE [Suspect]
     Indication: BACK PAIN
     Dosage: ED
  4. BUPIVACAINE [Suspect]
     Indication: EPIDURAL ANAESTHESIA
     Dosage: ED
  5. TRIAMCINOLONE [Suspect]
     Indication: BACK PAIN
     Dosage: ED
  6. TRIAMCINOLONE [Suspect]
     Indication: EPIDURAL ANAESTHESIA
     Dosage: ED

REACTIONS (13)
  - ABDOMINAL DISCOMFORT [None]
  - ANAESTHETIC COMPLICATION [None]
  - ANGIOPATHY [None]
  - ARTERIAL INJURY [None]
  - CAPILLARY DISORDER [None]
  - DIPLEGIA [None]
  - IATROGENIC INJURY [None]
  - INFARCTION [None]
  - PAIN [None]
  - PARAPARESIS [None]
  - SPINAL SHOCK [None]
  - VASCULAR OCCLUSION [None]
  - VASOSPASM [None]
